FAERS Safety Report 13515501 (Version 1)
Quarter: 2017Q2

REPORT INFORMATION
  Report Type: Spontaneous
  Country: US (occurrence: US)
  Receive Date: 20170504
  Receipt Date: 20170504
  Transmission Date: 20170830
  Serious: Yes (Other)
  Sender: FDA-Public Use
  Company Number: PHEH2017US012580

PATIENT
  Age: 50 Year
  Sex: Female

DRUGS (1)
  1. VOTRIENT [Suspect]
     Active Substance: PAZOPANIB HYDROCHLORIDE
     Indication: SOFT TISSUE SARCOMA
     Dosage: 800 MG, QD (4 DF)
     Route: 048
     Dates: start: 20161107, end: 20170426

REACTIONS (2)
  - Malignant neoplasm progression [Unknown]
  - Soft tissue sarcoma [Unknown]

NARRATIVE: CASE EVENT DATE: 20170426
